FAERS Safety Report 5902423-8 (Version None)
Quarter: 2008Q3

REPORT INFORMATION
  Report Type: 
  Country: None (occurrence: None)
  Receive Date: 20080925
  Receipt Date: 20080922
  Transmission Date: 20090109
  Serious: Yes (Hospitalization)
  Sender: FDA-Public Use
  Company Number: 2008BI000218

PATIENT
  Age: 63 Year
  Sex: Female
  Weight: 56.6996 kg

DRUGS (3)
  1. AVONEX [Suspect]
     Indication: MULTIPLE SCLEROSIS
     Dosage: 30 UG; QW; IM, 30 UG; QW; IM, IM
     Route: 030
     Dates: start: 19970401, end: 20030101
  2. AVONEX [Suspect]
     Indication: MULTIPLE SCLEROSIS
     Dosage: 30 UG; QW; IM, 30 UG; QW; IM, IM
     Route: 030
     Dates: start: 20030101, end: 20080118
  3. AVONEX [Suspect]
     Indication: MULTIPLE SCLEROSIS
     Dosage: 30 UG; QW; IM, 30 UG; QW; IM, IM
     Route: 030
     Dates: start: 20080324

REACTIONS (7)
  - ADRENAL NEOPLASM [None]
  - CARDIAC DISORDER [None]
  - CHEST PAIN [None]
  - COCCIDIOIDOMYCOSIS [None]
  - HYPOTENSION [None]
  - LUNG NEOPLASM [None]
  - LYMPHADENOPATHY [None]
